FAERS Safety Report 10126294 (Version 1)
Quarter: 2014Q2

REPORT INFORMATION
  Report Type: Spontaneous
  Country: FR (occurrence: FR)
  Receive Date: 20140427
  Receipt Date: 20140427
  Transmission Date: 20141212
  Serious: Yes (Death, Hospitalization)
  Sender: FDA-Public Use
  Company Number: FR-BRISTOL-MYERS SQUIBB COMPANY-20651238

PATIENT
  Age: 80 Year
  Sex: Male

DRUGS (1)
  1. COUMADINE [Suspect]
     Indication: ARRHYTHMIA
     Route: 048
     Dates: start: 201203

REACTIONS (3)
  - Death [Fatal]
  - Haematuria [Unknown]
  - Prostate cancer metastatic [Unknown]
